FAERS Safety Report 11139950 (Version 1)
Quarter: 2015Q2

REPORT INFORMATION
  Report Type: Spontaneous
  Country: US (occurrence: US)
  Receive Date: 20150527
  Receipt Date: 20150527
  Transmission Date: 20150821
  Serious: No
  Sender: FDA-Public Use
  Company Number: US-PFIZER INC-2015172902

PATIENT
  Age: 58 Year
  Sex: Female
  Weight: 50.79 kg

DRUGS (2)
  1. TORISEL [Suspect]
     Active Substance: TEMSIROLIMUS
     Indication: UTERINE CANCER
     Dosage: 15 MG, WEEKLY
     Dates: start: 20150506
  2. TORISEL [Suspect]
     Active Substance: TEMSIROLIMUS
     Dosage: 15 MG, 2X/DAY

REACTIONS (2)
  - Lip swelling [Not Recovered/Not Resolved]
  - Mouth swelling [Not Recovered/Not Resolved]

NARRATIVE: CASE EVENT DATE: 20150507
